FAERS Safety Report 24732619 (Version 1)
Quarter: 2024Q4

REPORT INFORMATION
  Report Type: Spontaneous
  Country: IN (occurrence: IN)
  Receive Date: 20241213
  Receipt Date: 20241213
  Transmission Date: 20250114
  Serious: Yes (Hospitalization, Other)
  Sender: NIVAGEN PHARMACEUTICALS INC
  Company Number: IN-NPI-000071

PATIENT
  Age: 13 Year
  Sex: Male
  Weight: 40 kg

DRUGS (11)
  1. KETAMINE [Suspect]
     Active Substance: KETAMINE
     Indication: Spontaneous penile erection
     Dosage: DOSES OF 20 MG, 20 MG, AND 10 MG AT 3-MINUTE INTERVALS
     Route: 042
  2. SEVOFLURANE [Suspect]
     Active Substance: SEVOFLURANE
     Indication: General anaesthesia
     Route: 065
  3. SEVOFLURANE [Suspect]
     Active Substance: SEVOFLURANE
     Indication: Spontaneous penile erection
     Route: 065
  4. ATRACURIUM [Suspect]
     Active Substance: ATRACURIUM
     Indication: Spontaneous penile erection
     Route: 042
  5. ATRACURIUM [Suspect]
     Active Substance: ATRACURIUM
     Indication: Hypotonia
     Route: 042
  6. LIDOCAINE [Suspect]
     Active Substance: LIDOCAINE
     Indication: Nerve block
     Dosage: 2.5 ML OF 2 PERCENT GIVEN BILATERALLY
     Route: 065
  7. MIDAZOLAM [Concomitant]
     Active Substance: MIDAZOLAM
     Indication: Spinal anaesthesia
     Route: 042
  8. MIDAZOLAM [Concomitant]
     Active Substance: MIDAZOLAM
     Indication: Sedation
     Route: 042
  9. FENTANYL [Concomitant]
     Active Substance: FENTANYL
     Indication: Spinal anaesthesia
     Dosage: THROUGH 26-GAUGE QUINCKE^S NEEDLE
     Route: 024
  10. BUPIVACAINE [Concomitant]
     Active Substance: BUPIVACAINE
     Indication: Spinal anaesthesia
     Dosage: 2 ML OF 0.5 PERCENTAGE
     Route: 065
  11. GLYCOPYRROLATE [Suspect]
     Active Substance: GLYCOPYRROLATE
     Indication: Spontaneous penile erection
     Route: 042

REACTIONS (1)
  - Treatment failure [Unknown]
